FAERS Safety Report 20264260 (Version 1)
Quarter: 2021Q4

REPORT INFORMATION
  Report Type: Spontaneous
  Country: US (occurrence: None)
  Receive Date: 20211230
  Receipt Date: 20211230
  Transmission Date: 20220303
  Serious: Yes (Hospitalization)
  Sender: FDA-Public Use
  Company Number: None

PATIENT
  Age: 79 Year
  Sex: Female
  Weight: 66.6 kg

DRUGS (2)
  1. CARBOPLATIN [Suspect]
     Active Substance: CARBOPLATIN
     Dates: end: 20211208
  2. ETOPOSIDE [Suspect]
     Active Substance: ETOPOSIDE
     Dates: end: 20211210

REACTIONS (3)
  - Syncope [None]
  - Fall [None]
  - Clavicle fracture [None]

NARRATIVE: CASE EVENT DATE: 20211217
